FAERS Safety Report 17236691 (Version 8)
Quarter: 2022Q2

REPORT INFORMATION
  Report Type: Report from Study
  Country: US (occurrence: US)
  Receive Date: 20200106
  Receipt Date: 20220412
  Transmission Date: 20220720
  Serious: Yes (Hospitalization, Other)
  Sender: FDA-Public Use
  Company Number: None

PATIENT
  Age: 73 Year
  Sex: Male
  Weight: 131.5 kg

DRUGS (6)
  1. COSENTYX [Suspect]
     Active Substance: SECUKINUMAB
     Indication: Product used for unknown indication
     Dosage: UNK
     Route: 065
  2. TIOTROPIUM [Concomitant]
     Active Substance: TIOTROPIUM
     Indication: Product used for unknown indication
     Dosage: 2 DF, QD DOSE (2 PUFFS) 2.5 MCG/INHALATION
     Route: 055
  3. ZOCOR [Concomitant]
     Active Substance: SIMVASTATIN
     Indication: Blood cholesterol
     Dosage: 40 MG
     Route: 048
  4. ISOPROPYLALCOHOL [Concomitant]
     Indication: Product used for unknown indication
     Dosage: UNK, QMO
     Route: 061
  5. LANTUS [Concomitant]
     Active Substance: INSULIN GLARGINE
     Indication: Product used for unknown indication
     Dosage: UNK
     Route: 058
  6. CHLORTHALIDONE [Concomitant]
     Active Substance: CHLORTHALIDONE
     Indication: Product used for unknown indication
     Dosage: 25 MG, QD
     Route: 048

REACTIONS (7)
  - Cellulitis [Recovered/Resolved]
  - COVID-19 pneumonia [Recovered/Resolved]
  - COVID-19 [Unknown]
  - Cerebrovascular accident [Unknown]
  - Diabetes mellitus [Unknown]
  - Hypoglycaemia [Unknown]
  - Hypotension [Unknown]

NARRATIVE: CASE EVENT DATE: 20210906
